FAERS Safety Report 21955165 (Version 1)
Quarter: 2023Q1

REPORT INFORMATION
  Report Type: Spontaneous
  Country: US (occurrence: US)
  Receive Date: 20230206
  Receipt Date: 20230206
  Transmission Date: 20230418
  Serious: Yes (Other)
  Sender: FDA-Public Use
  Company Number: US-BRISTOL-MYERS SQUIBB COMPANY-2022-133845

PATIENT
  Age: 59 Year
  Sex: Male
  Weight: 64.41 kg

DRUGS (7)
  1. SPRYCEL [Suspect]
     Active Substance: DASATINIB
     Indication: Chronic myeloid leukaemia
     Dates: start: 20200817
  2. SPRYCEL [Suspect]
     Active Substance: DASATINIB
     Dates: end: 20211102
  3. SPRYCEL [Suspect]
     Active Substance: DASATINIB
     Dates: start: 20210528, end: 20210624
  4. SPRYCEL [Suspect]
     Active Substance: DASATINIB
     Dates: start: 20210727
  5. SPRYCEL [Suspect]
     Active Substance: DASATINIB
     Route: 048
     Dates: start: 20211008
  6. SPRYCEL [Suspect]
     Active Substance: DASATINIB
  7. LAGEVRIO [Concomitant]
     Active Substance: MOLNUPIRAVIR
     Indication: Product used for unknown indication

REACTIONS (8)
  - Thrombocytopenia [Unknown]
  - Drug intolerance [Unknown]
  - Inappropriate antidiuretic hormone secretion [Recovering/Resolving]
  - Splenomegaly [Not Recovered/Not Resolved]
  - Hypothyroidism [Unknown]
  - Leukopenia [Unknown]
  - Anaemia [Unknown]
  - Chronic myeloid leukaemia [Unknown]

NARRATIVE: CASE EVENT DATE: 20201001
